FAERS Safety Report 8824603 (Version 1)
Quarter: 2012Q4

REPORT INFORMATION
  Report Type: Report from Study
  Country: JP (occurrence: JP)
  Receive Date: 20121004
  Receipt Date: 20121004
  Transmission Date: 20130627
  Serious: Yes (Hospitalization)
  Sender: FDA-Public Use
  Company Number: JP-SANOFI-AVENTIS-2012SA071949

PATIENT
  Age: 43 Year
  Sex: Female
  Weight: 54.5 kg

DRUGS (5)
  1. DOCETAXEL [Suspect]
     Indication: HER-2 POSITIVE BREAST CANCER
     Dosage: vial
     Route: 042
     Dates: start: 20120612
  2. TRASTUZUMAB [Suspect]
     Indication: HER-2 POSITIVE BREAST CANCER
     Dosage: vial
     Route: 042
     Dates: start: 20120612
  3. CARBOPLATIN [Suspect]
     Indication: HER-2 POSITIVE BREAST CANCER
     Dosage: vial, dose- AUC6
     Route: 042
     Dates: start: 20120612
  4. BLINDED THERAPY [Suspect]
     Indication: HER-2 POSITIVE BREAST CANCER
     Dosage: vial
     Route: 042
     Dates: start: 20120612
  5. BACILLUS SUBTILIS/LACTOBACILLUS ACIDOPHILUS/STREPTOCOCCUS FAECALIS [Concomitant]
     Dates: start: 20120621, end: 20120624

REACTIONS (1)
  - Oropharyngeal discomfort [Recovered/Resolved]
